FAERS Safety Report 7027234-4 (Version None)
Quarter: 2010Q4

REPORT INFORMATION
  Report Type: 
  Country: None (occurrence: None)
  Receive Date: 20101001
  Receipt Date: 20101001
  Transmission Date: 20110411
  Serious: Yes (Hospitalization)
  Sender: FDA-Public Use
  Company Number: None

PATIENT
  Sex: Male

DRUGS (1)
  1. TARCEVA [Suspect]
     Indication: LUNG NEOPLASM MALIGNANT
     Dosage: 1 TABLET (150MD) DAILY BY MOUTH
     Route: 048
     Dates: start: 20100723, end: 20100913

REACTIONS (1)
  - GASTROINTESTINAL ULCER HAEMORRHAGE [None]
